FAERS Safety Report 15331063 (Version 1)
Quarter: 2018Q3

REPORT INFORMATION
  Report Type: Spontaneous
  Country: US (occurrence: US)
  Receive Date: 20180829
  Receipt Date: 20180829
  Transmission Date: 20181010
  Serious: Yes (Hospitalization, Other)
  Sender: FDA-Public Use
  Company Number: US-SA-2018SA215672

PATIENT
  Age: 72 Year
  Sex: Male

DRUGS (9)
  1. AMPHOTERICIN B. [Concomitant]
     Active Substance: AMPHOTERICIN B
     Dosage: 5 MG/KG, QD
  2. AMPHOTERICIN B. [Concomitant]
     Active Substance: AMPHOTERICIN B
     Dosage: 3 UNK
  3. LEFLUNOMIDE. [Suspect]
     Active Substance: LEFLUNOMIDE
     Indication: IMMUNOSUPPRESSION
  4. AMOXICILLIN;CLAVULANIC ACID [Concomitant]
     Dosage: UNK
     Dates: start: 201503
  5. METHYLPREDNISOLONE. [Suspect]
     Active Substance: METHYLPREDNISOLONE
     Indication: TRANSPLANT REJECTION
     Dosage: 250 MG
  6. PREDNISONE. [Suspect]
     Active Substance: PREDNISONE
     Indication: IMMUNOSUPPRESSION
  7. VALGANCICLOVIR. [Concomitant]
     Active Substance: VALGANCICLOVIR
     Indication: ANTIVIRAL PROPHYLAXIS
  8. ALEMTUZUMAB [Suspect]
     Active Substance: ALEMTUZUMAB
     Indication: IMMUNOSUPPRESSION
     Dosage: UNK
     Dates: start: 2010
  9. TACROLIMUS. [Suspect]
     Active Substance: TACROLIMUS
     Indication: IMMUNOSUPPRESSION
     Dosage: 5 MG IN THE MORNING AND 4 MG IN TH EVENING

REACTIONS (15)
  - Brain abscess [Recovered/Resolved]
  - Human polyomavirus infection [Recovering/Resolving]
  - Pulmonary fibrosis [Recovering/Resolving]
  - Pulmonary mass [Recovered/Resolved]
  - Inflammation [Recovering/Resolving]
  - Disease progression [Recovering/Resolving]
  - Fatigue [Unknown]
  - Nephropathy [Recovering/Resolving]
  - Night sweats [Unknown]
  - Hypophagia [Unknown]
  - Fungal infection [Recovered/Resolved]
  - Productive cough [Unknown]
  - Disease recurrence [Recovering/Resolving]
  - Haematuria [Recovering/Resolving]
  - Weight decreased [Unknown]

NARRATIVE: CASE EVENT DATE: 2015
